FAERS Safety Report 23580014 (Version 2)
Quarter: 2024Q1

REPORT INFORMATION
  Report Type: Spontaneous
  Country: RS (occurrence: RS)
  Receive Date: 20240229
  Receipt Date: 20240304
  Transmission Date: 20240410
  Serious: Yes (Hospitalization, Other)
  Sender: FDA-Public Use
  Company Number: RS-009507513-2402SRB008531

PATIENT
  Age: 64 Year
  Sex: Male

DRUGS (4)
  1. ERTAPENEM SODIUM [Suspect]
     Active Substance: ERTAPENEM SODIUM
     Indication: Antibiotic therapy
  2. MEROPENEM [Suspect]
     Active Substance: MEROPENEM
     Indication: Antibiotic therapy
  3. LINEZOLID [Suspect]
     Active Substance: LINEZOLID
     Indication: Antibiotic therapy
  4. COLISTIN [Suspect]
     Active Substance: COLISTIN
     Indication: Antibiotic therapy

REACTIONS (5)
  - Respiratory failure [Unknown]
  - Renal failure [Unknown]
  - Pneumonia klebsiella [Unknown]
  - Hypotension [Unknown]
  - Therapy non-responder [Unknown]
